FAERS Safety Report 4436471-4 (Version None)
Quarter: 2004Q3

REPORT INFORMATION
  Report Type: 
  Country: None (occurrence: None)
  Receive Date: 20040830
  Receipt Date: 20040524
  Transmission Date: 20050211
  Serious: No
  Sender: FDA-Public Use
  Company Number: US-BRISTOL-MYERS SQUIBB COMPANY-12595112

PATIENT
  Age: 36 Year
  Sex: Male
  Weight: 95 kg

DRUGS (2)
  1. ABILIFY [Suspect]
     Indication: PARANOIA
     Route: 048
  2. ATIVAN [Concomitant]

REACTIONS (2)
  - FATIGUE [None]
  - PARKINSONISM [None]
